FAERS Safety Report 9404349 (Version 2)
Quarter: 2013Q3

REPORT INFORMATION
  Report Type: Spontaneous
  Country: US (occurrence: None)
  Receive Date: 20130715
  Receipt Date: 20130725
  Transmission Date: 20140515
  Serious: Yes (Other)
  Sender: FDA-Public Use
  Company Number: AUR-APL-2013-05777

PATIENT
  Age: 65 Year
  Sex: Male
  Weight: 87.98 kg

DRUGS (4)
  1. METFORMIN [Suspect]
     Indication: DIABETES MELLITUS
  2. GLIPIZIDE [Suspect]
     Indication: DIABETES MELLITUS
  3. CELEBREX (CELECOXIB) [Suspect]
     Indication: SPONDYLITIS
     Dosage: 100 MG (100 MG, 1 IN 1 D), ORAL
     Route: 048
  4. DILANTIN [Suspect]
     Indication: CONVULSION
     Dosage: 400 MG (200 MG, 2 IN 1 D), UNKNOWN

REACTIONS (7)
  - Convulsion [None]
  - Drug ineffective [None]
  - Blindness unilateral [None]
  - Blood glucose increased [None]
  - Gait disturbance [None]
  - Drug interaction [None]
  - Dyspepsia [None]
